FAERS Safety Report 8106316-X (Version None)
Quarter: 2012Q1

REPORT INFORMATION
  Report Type: 
  Country: None (occurrence: None)
  Receive Date: 20120130
  Receipt Date: 20120120
  Transmission Date: 20120608
  Serious: Yes (Hospitalization)
  Sender: FDA-Public Use
  Company Number: DKLU1076252

PATIENT
  Age: 12 Year
  Sex: Male

DRUGS (7)
  1. SABRIL [Suspect]
     Indication: EPILEPSY
     Dosage: 1250 MG MILLIGRAM(S), QHS, ORAL
     Route: 048
  2. KEPPRA [Concomitant]
  3. LACOSAMIDE [Concomitant]
  4. LAMOTRIGINE [Concomitant]
  5. VALIUM [Concomitant]
  6. KETOGENIC DIET (CARBOHYDRATES) [Concomitant]
  7. BANZEL (RUFINAMIDE) [Concomitant]

REACTIONS (1)
  - EYE INFECTION [None]
